FAERS Safety Report 19090860 (Version 1)
Quarter: 2021Q2

REPORT INFORMATION
  Report Type: Spontaneous
  Country: US (occurrence: US)
  Receive Date: 20210405
  Receipt Date: 20210405
  Transmission Date: 20210717
  Serious: No
  Sender: FDA-Public Use
  Company Number: US-JNJFOC-20210245269

PATIENT
  Age: 61 Year
  Sex: Female
  Weight: 31.78 kg

DRUGS (2)
  1. RHINOCORT ALLERGY [Suspect]
     Active Substance: BUDESONIDE
     Indication: RHINORRHOEA
     Dosage: 1 SPRAY EVERY NOSTRIL; PRODUCT START DATE: 3 WEEKS AGO; LAST DRUG ADMIN DATE: 17?FEB?2021
  2. RHINOCORT ALLERGY [Suspect]
     Active Substance: BUDESONIDE
     Indication: MULTIPLE ALLERGIES

REACTIONS (1)
  - Expired product administered [Unknown]

NARRATIVE: CASE EVENT DATE: 2021
